FAERS Safety Report 9454207 (Version 1)
Quarter: 2013Q3

REPORT INFORMATION
  Report Type: Spontaneous
  Country: US (occurrence: None)
  Receive Date: 20130807
  Receipt Date: 20130807
  Transmission Date: 20140515
  Serious: Yes (Other)
  Sender: FDA-Public Use
  Company Number: CAL_02672_2013

PATIENT
  Sex: Female

DRUGS (5)
  1. LOPRESSOR (NOT SPECIFIED) [Suspect]
     Indication: CARDIAC OPERATION
     Dates: end: 201305
  2. LOPRESSOR (NOT SPECIFIED) [Suspect]
     Indication: OFF LABEL USE
     Dates: end: 201305
  3. COUMADINE [Concomitant]
  4. LIPITOR [Concomitant]
  5. VELOPIPINE [Concomitant]

REACTIONS (5)
  - Dizziness [None]
  - Heart rate increased [None]
  - Feeling abnormal [None]
  - Blood cholesterol increased [None]
  - Blood pressure increased [None]
